FAERS Safety Report 25254324 (Version 3)
Quarter: 2025Q3

REPORT INFORMATION
  Report Type: Report from Study
  Country: EU (occurrence: EU)
  Receive Date: 20250430
  Receipt Date: 20250912
  Transmission Date: 20251021
  Serious: Yes (Hospitalization)
  Sender: ALEXION PHARMACEUTICALS
  Company Number: EU-ASTRAZENECA-202504GLO019490DE

PATIENT
  Age: 77 Year
  Sex: Male
  Weight: 85 kg

DRUGS (5)
  1. DURVALUMAB [Suspect]
     Active Substance: DURVALUMAB
     Indication: Hepatocellular carcinoma
     Dates: start: 20241125, end: 20241125
  2. DURVALUMAB [Suspect]
     Active Substance: DURVALUMAB
     Dates: start: 20241223, end: 20241223
  3. DURVALUMAB [Suspect]
     Active Substance: DURVALUMAB
     Dates: start: 20250120, end: 20250120
  4. DURVALUMAB [Suspect]
     Active Substance: DURVALUMAB
     Dates: start: 20250217, end: 20250217
  5. DURVALUMAB [Suspect]
     Active Substance: DURVALUMAB
     Dates: start: 20250317, end: 20250317

REACTIONS (1)
  - Dehydration [Recovered/Resolved]

NARRATIVE: CASE EVENT DATE: 20250321
